FAERS Safety Report 17671541 (Version 2)
Quarter: 2020Q2

REPORT INFORMATION
  Report Type: Report from Study
  Country: US (occurrence: US)
  Receive Date: 20200415
  Receipt Date: 20200423
  Transmission Date: 20200713
  Serious: Yes (Death, Other)
  Sender: FDA-Public Use
  Company Number: US-HORIZON-ACT-0171-2020

PATIENT
  Sex: Male

DRUGS (3)
  1. LOW-DOSE IL-2 [Concomitant]
     Indication: METASTASES TO LUNG
     Dosage: 250 000 U/M2 EVERY 12 HOURS
  2. INTERFERON GAMMA 1 B [Suspect]
     Active Substance: INTERFERON GAMMA-1B
     Indication: METASTASES TO LUNG
     Dosage: 100?G/M2 FOR 4 WEEKS
  3. HIGH-DOSE CYCLOPHOSPHAMIDE (HD CY) [Suspect]
     Active Substance: CYCLOPHOSPHAMIDE
     Indication: METASTASES TO LUNG
     Dosage: 2G/M2/DAY ON DAYS -3 AND -2

REACTIONS (2)
  - Cardiac arrest [Fatal]
  - Myocarditis [Fatal]
